FAERS Safety Report 21734290 (Version 1)
Quarter: 2022Q4

REPORT INFORMATION
  Report Type: Report from Study
  Country: CA (occurrence: CA)
  Receive Date: 20221215
  Receipt Date: 20221215
  Transmission Date: 20230113
  Serious: Yes (Other)
  Sender: FDA-Public Use
  Company Number: CA-OTSUKA-2022_051744

PATIENT
  Age: 21 Year
  Sex: Female

DRUGS (1)
  1. TOLVAPTAN [Suspect]
     Active Substance: TOLVAPTAN
     Indication: Product used for unknown indication
     Dosage: UNK
     Route: 048

REACTIONS (4)
  - Abdominal pain lower [Recovered/Resolved]
  - Blood urine present [Recovered/Resolved]
  - Abdominal distension [Recovered/Resolved]
  - Intentional dose omission [Unknown]
